FAERS Safety Report 25661880 (Version 1)
Quarter: 2025Q3

REPORT INFORMATION
  Report Type: Spontaneous
  Country: US (occurrence: US)
  Receive Date: 20250809
  Receipt Date: 20250809
  Transmission Date: 20251020
  Serious: Yes (Other)
  Sender: AMGEN
  Company Number: US-AMGEN-USASP2025155379

PATIENT
  Age: 50 Year
  Sex: Female

DRUGS (17)
  1. TEPEZZA [Suspect]
     Active Substance: TEPROTUMUMAB-TRBW
     Indication: Product used for unknown indication
     Route: 040
  2. TEPEZZA [Suspect]
     Active Substance: TEPROTUMUMAB-TRBW
     Route: 040
     Dates: start: 20230112
  3. TEPEZZA [Suspect]
     Active Substance: TEPROTUMUMAB-TRBW
     Route: 040
     Dates: start: 20230206
  4. TEPEZZA [Suspect]
     Active Substance: TEPROTUMUMAB-TRBW
     Route: 040
     Dates: start: 20230227
  5. TEPEZZA [Suspect]
     Active Substance: TEPROTUMUMAB-TRBW
     Route: 040
     Dates: start: 20230323
  6. PREDNISONE [Suspect]
     Active Substance: PREDNISONE
     Indication: Endocrine ophthalmopathy
     Dosage: 40 MILLIGRAM, QD (FOR 2-3 MONTHS)
     Route: 065
     Dates: start: 2018
  7. PREDNISONE [Suspect]
     Active Substance: PREDNISONE
     Indication: Exophthalmos
     Dosage: 20 MILLIGRAM, QD (X 7 DAYS)
     Route: 065
     Dates: start: 2019
  8. PREDNISONE [Suspect]
     Active Substance: PREDNISONE
     Route: 065
     Dates: start: 201907
  9. PREDNISONE [Suspect]
     Active Substance: PREDNISONE
     Route: 065
     Dates: start: 202002
  10. PREDNISONE [Suspect]
     Active Substance: PREDNISONE
     Route: 065
     Dates: start: 202004, end: 202010
  11. PLAQUENIL [Concomitant]
     Active Substance: HYDROXYCHLOROQUINE SULFATE
     Dosage: 200 MILLIGRAM, QD
     Route: 048
     Dates: start: 20220407
  12. SYNTHROID [Concomitant]
     Active Substance: LEVOTHYROXINE SODIUM
     Dosage: 150 MICROGRAM, QD
     Route: 048
     Dates: start: 20220506, end: 20230111
  13. LEVOTHROID [Concomitant]
     Active Substance: LEVOTHYROXINE SODIUM
     Route: 048
     Dates: start: 20220506, end: 20230111
  14. COZAAR [Concomitant]
     Active Substance: LOSARTAN POTASSIUM
     Dosage: 100 MILLIGRAM, QD
     Route: 065
     Dates: start: 20220819, end: 20230111
  15. METHIMAZOLE [Concomitant]
     Active Substance: METHIMAZOLE
     Indication: Graves^ disease
     Route: 065
     Dates: start: 201805
  16. SELENIUM [Concomitant]
     Active Substance: SELENIUM
     Route: 065
  17. Artificial tears [Concomitant]
     Dosage: UNK UNK, QD
     Route: 047

REACTIONS (7)
  - Rheumatoid arthritis [Unknown]
  - Glucose tolerance impaired [Unknown]
  - Therapeutic product effect decreased [Unknown]
  - Eye swelling [Unknown]
  - Ocular discomfort [Unknown]
  - Drug effective for unapproved indication [Unknown]
  - Off label use [Unknown]

NARRATIVE: CASE EVENT DATE: 20180101
